FAERS Safety Report 11820350 (Version 1)
Quarter: 2015Q4

REPORT INFORMATION
  Report Type: Spontaneous
  Country: US (occurrence: US)
  Receive Date: 20151210
  Receipt Date: 20151210
  Transmission Date: 20160305
  Serious: Yes (Life-Threatening, Hospitalization, Other)
  Sender: FDA-Public Use
  Company Number: US-ROCHE-1675431

PATIENT
  Sex: Female

DRUGS (2)
  1. AVASTIN [Suspect]
     Active Substance: BEVACIZUMAB
     Indication: COLON CANCER
     Route: 042
     Dates: start: 2010, end: 20131219
  2. XELODA [Suspect]
     Active Substance: CAPECITABINE
     Indication: COLON CANCER
     Dosage: 500MG TABLETS X 2 TWICE A DAY
     Route: 065
     Dates: start: 2010

REACTIONS (8)
  - Sepsis [Unknown]
  - Nasal septum perforation [Unknown]
  - Blood pressure increased [Recovered/Resolved]
  - Pyrexia [Unknown]
  - Pain [Unknown]
  - Amputation [Unknown]
  - Neuralgia [Unknown]
  - Intestinal perforation [Recovered/Resolved with Sequelae]
